FAERS Safety Report 10962812 (Version 1)
Quarter: 2015Q1

REPORT INFORMATION
  Report Type: Spontaneous
  Country: CN (occurrence: CN)
  Receive Date: 20150327
  Receipt Date: 20150327
  Transmission Date: 20150721
  Serious: Yes (Hospitalization, Other)
  Sender: FDA-Public Use
  Company Number: CN-ASTRAZENECA-2015SE26966

PATIENT
  Age: 78 Year
  Sex: Male

DRUGS (5)
  1. PLENDIL [Suspect]
     Active Substance: FELODIPINE
     Indication: HYPERTENSION
     Route: 048
  2. NORVASC [Concomitant]
     Active Substance: AMLODIPINE BESYLATE
  3. BETALOC ZOK [Suspect]
     Active Substance: METOPROLOL SUCCINATE
     Dosage: ONE AND A HALF TABLET DAILY
     Route: 048
     Dates: start: 201411
  4. ATORVASTATIN [Concomitant]
     Active Substance: ATORVASTATIN
  5. BETALOC [Suspect]
     Active Substance: METOPROLOL TARTRATE
     Dosage: 50 MG TWO TO THREE TIMES DAILY
     Route: 048

REACTIONS (7)
  - Hypotension [Unknown]
  - Blood uric acid increased [Unknown]
  - Cold sweat [Unknown]
  - Blood creatine increased [Unknown]
  - Pollakiuria [Unknown]
  - Aortic dissection [Unknown]
  - Asthenia [Unknown]

NARRATIVE: CASE EVENT DATE: 20140909
